FAERS Safety Report 9032732 (Version 2)
Quarter: 2013Q1

REPORT INFORMATION
  Report Type: Spontaneous
  Country: US (occurrence: US)
  Receive Date: 20130128
  Receipt Date: 20130215
  Transmission Date: 20140127
  Serious: Yes (Hospitalization)
  Sender: FDA-Public Use
  Company Number: US-BIOGENIDEC-2013BI005927

PATIENT
  Age: 31 Year
  Sex: Female

DRUGS (1)
  1. AVONEX [Suspect]
     Indication: MULTIPLE SCLEROSIS
     Route: 030
     Dates: start: 20121215

REACTIONS (20)
  - Cough [Recovered/Resolved]
  - Pneumonia [Recovered/Resolved]
  - Unresponsive to stimuli [Recovered/Resolved]
  - Memory impairment [Recovered/Resolved]
  - Dyspnoea [Recovered/Resolved]
  - Drug abuse [Unknown]
  - Eye movement disorder [Recovered/Resolved]
  - Aphasia [Recovered/Resolved]
  - Deafness [Recovered/Resolved]
  - Blindness [Recovered/Resolved]
  - Pulmonary oedema [Unknown]
  - General symptom [Unknown]
  - Weight increased [Not Recovered/Not Resolved]
  - Myalgia [Recovered/Resolved]
  - Pain [Unknown]
  - Headache [Unknown]
  - Rhinorrhoea [Unknown]
  - Confusional state [Unknown]
  - Influenza like illness [Recovered/Resolved]
  - Pyrexia [Unknown]
